FAERS Safety Report 8814557 (Version 1)
Quarter: 2012Q4

REPORT INFORMATION
  Report Type: 
  Country: US (occurrence: US)
  Receive Date: 20120928
  Receipt Date: 20120928
  Transmission Date: 20130627
  Serious: No
  Sender: FDA-Public Use
  Company Number: US-B.I. PHARMACEUTICALS,INC./RIDGEFIELD-2012-BP-23249BP

PATIENT
  Sex: Female

DRUGS (6)
  1. MIRAPEX [Suspect]
     Indication: DEPRESSION
     Dosage: 0.5 mg
     Route: 048
     Dates: start: 2012, end: 2012
  2. MIRAPEX [Suspect]
     Dosage: 0.125 mg
     Route: 048
     Dates: start: 2012, end: 2012
  3. KLONAPIN [Concomitant]
     Indication: BIPOLAR DISORDER
     Dosage: 6 mg
     Route: 048
     Dates: start: 1991
  4. MELATONIN [Concomitant]
     Indication: SLEEP DISORDER
     Route: 048
     Dates: start: 2012
  5. EMSAM [Concomitant]
     Indication: BIPOLAR DISORDER
     Dosage: 6 mg
     Dates: start: 2009
  6. RESTASIS [Concomitant]
     Indication: DRY EYE
     Dates: start: 2010

REACTIONS (9)
  - Pelvic pain [Not Recovered/Not Resolved]
  - Obsessive-compulsive disorder [Not Recovered/Not Resolved]
  - Flatulence [Not Recovered/Not Resolved]
  - Gastrooesophageal reflux disease [Not Recovered/Not Resolved]
  - Insomnia [Not Recovered/Not Resolved]
  - Vaginal discharge [Not Recovered/Not Resolved]
  - Constipation [Not Recovered/Not Resolved]
  - Muscular weakness [Not Recovered/Not Resolved]
  - Confusional state [Not Recovered/Not Resolved]
